FAERS Safety Report 5270332-6 (Version None)
Quarter: 2007Q1

REPORT INFORMATION
  Report Type: 
  Country: None (occurrence: None)
  Receive Date: 20070314
  Receipt Date: 20070302
  Transmission Date: 20070707
  Serious: Yes (Other)
  Sender: FDA-Public Use
  Company Number: GXKR2007AU02245

PATIENT
  Age: 48 Year
  Sex: Female

DRUGS (8)
  1. AMOXICILLIN+CLAVULANATE (NGX)(AMOXICILLIN, CLAVULANATE) UNKNOWN, 875/1 [Suspect]
     Dosage: UNK, UNK, ORAL
     Route: 048
  2. PANAFCORTELONE (PREDNISOLONE) [Concomitant]
  3. DERALIN (PROPRANOLOL) [Concomitant]
  4. ACITRETIN [Concomitant]
  5. ROCALTROL [Concomitant]
  6. NEXIUM [Concomitant]
  7. GRX AZATHIOPRINE (AZATHIOPRINE) [Concomitant]
  8. LIPITOR [Concomitant]

REACTIONS (2)
  - PHARYNGEAL OEDEMA [None]
  - VOMITING [None]
